FAERS Safety Report 26144034 (Version 2)
Quarter: 2025Q4

REPORT INFORMATION
  Report Type: Spontaneous
  Country: EU (occurrence: EU)
  Receive Date: 20251211
  Receipt Date: 20251223
  Transmission Date: 20260119
  Serious: Yes (Other)
  Sender: ALEXION PHARMACEUTICALS
  Company Number: EU-AstraZeneca-CH-01008504A

PATIENT
  Sex: Female

DRUGS (1)
  1. CALQUENCE [Suspect]
     Active Substance: ACALABRUTINIB
     Indication: Chronic lymphocytic leukaemia
     Dosage: 100 MILLIGRAM, QD
     Route: 061
     Dates: start: 2022

REACTIONS (2)
  - Chronic myelomonocytic leukaemia [Not Recovered/Not Resolved]
  - Thrombocytopenia [Not Recovered/Not Resolved]
